FAERS Safety Report 10892880 (Version 1)
Quarter: 2015Q1

REPORT INFORMATION
  Report Type: Spontaneous
  Country: BR (occurrence: BR)
  Receive Date: 20150306
  Receipt Date: 20150306
  Transmission Date: 20150721
  Serious: Yes (Hospitalization)
  Sender: FDA-Public Use
  Company Number: BR-LUNDBECK-DKLU1109552

PATIENT
  Sex: Female

DRUGS (6)
  1. FRISIUM [Suspect]
     Active Substance: CLOBAZAM
     Route: 048
  2. DEPAKENE [Concomitant]
     Active Substance: VALPROIC ACID
     Indication: PRODUCT USED FOR UNKNOWN INDICATION
  3. FRISIUM [Suspect]
     Active Substance: CLOBAZAM
     Route: 048
     Dates: end: 20150223
  4. LIMBITROL [Concomitant]
     Active Substance: AMITRIPTYLINE\CHLORDIAZEPOXIDE
     Indication: PRODUCT USED FOR UNKNOWN INDICATION
  5. FRISIUM [Suspect]
     Active Substance: CLOBAZAM
     Indication: SEIZURE
     Route: 048
  6. FRISIUM [Suspect]
     Active Substance: CLOBAZAM
     Route: 048

REACTIONS (7)
  - Petit mal epilepsy [Unknown]
  - Malaise [Unknown]
  - Loss of consciousness [Unknown]
  - Menstruation delayed [Unknown]
  - Hypoaesthesia [Unknown]
  - Seizure [Unknown]
  - Formication [Unknown]

NARRATIVE: CASE EVENT DATE: 20150105
